FAERS Safety Report 16494290 (Version 2)
Quarter: 2019Q3

REPORT INFORMATION
  Report Type: Spontaneous
  Country: PL (occurrence: PL)
  Receive Date: 20190628
  Receipt Date: 20190704
  Transmission Date: 20191004
  Serious: Yes (Death, Other)
  Sender: FDA-Public Use
  Company Number: PHHY2019PL148930

PATIENT
  Age: 68 Year
  Sex: Male

DRUGS (4)
  1. PREDNISONE. [Suspect]
     Active Substance: PREDNISONE
     Indication: PERICARDIAL EFFUSION
     Dosage: 60 MG, QD
     Route: 065
  2. COLCHICINE. [Suspect]
     Active Substance: COLCHICINE
     Indication: PERICARDIAL EFFUSION
     Dosage: 0.5 MG, QD
     Route: 065
  3. METHYLPREDNISOLONE. [Suspect]
     Active Substance: METHYLPREDNISOLONE
     Indication: PERICARDIAL EFFUSION
     Dosage: 500 MG, UNK
     Route: 042
  4. METHOTREXATE. [Suspect]
     Active Substance: METHOTREXATE
     Indication: PERICARDIAL EFFUSION
     Dosage: 20 MG, QW
     Route: 065

REACTIONS (14)
  - Cardiac arrest [Fatal]
  - Cardiac tamponade [Unknown]
  - Pyrexia [Unknown]
  - Sepsis [Fatal]
  - Erythema [Recovering/Resolving]
  - Skin lesion [Recovering/Resolving]
  - Enterobacter infection [Fatal]
  - Respiratory failure [Fatal]
  - Condition aggravated [Unknown]
  - Dyspnoea at rest [Unknown]
  - Product use in unapproved indication [Unknown]
  - Septic shock [Fatal]
  - Inflammation [Recovering/Resolving]
  - Drug ineffective [Unknown]
